FAERS Safety Report 5049317-0 (Version None)
Quarter: 2006Q3

REPORT INFORMATION
  Report Type: 
  Country: None (occurrence: None)
  Receive Date: 20060712
  Receipt Date: 20060706
  Transmission Date: 20061208
  Serious: Yes (Hospitalization, Other)
  Sender: FDA-Public Use
  Company Number: US-MERCK-0607USA00506

PATIENT
  Age: 76 Year
  Sex: Female
  Weight: 80 kg

DRUGS (6)
  1. ZETIA [Suspect]
     Route: 048
     Dates: start: 20050314, end: 20060621
  2. AVANDIA [Concomitant]
     Route: 065
  3. GLYBURIDE [Concomitant]
     Route: 048
     Dates: start: 19990101
  4. NORVASC [Concomitant]
     Route: 048
     Dates: start: 20050901
  5. HALDOL [Concomitant]
     Route: 048
     Dates: start: 20050501
  6. TRAZODONE HYDROCHLORIDE [Concomitant]
     Route: 048
     Dates: start: 20030806

REACTIONS (2)
  - BLOOD CREATINE PHOSPHOKINASE INCREASED [None]
  - MUSCULAR WEAKNESS [None]
